FAERS Safety Report 4424615-X (Version None)
Quarter: 2004Q3

REPORT INFORMATION
  Report Type: 
  Country: None (occurrence: None)
  Receive Date: 20040809
  Receipt Date: 20040727
  Transmission Date: 20050211
  Serious: Yes (Hospitalization)
  Sender: FDA-Public Use
  Company Number: US-2004-028273

PATIENT
  Age: 43 Year
  Sex: Female

DRUGS (3)
  1. BETASERON [Suspect]
     Indication: MULTIPLE SCLEROSIS RELAPSE
     Dosage: 8 MIU, EVERY 2D, SUBCUTANEOUS
     Route: 058
     Dates: start: 20030922, end: 20040515
  2. PROVIGIL (MODAFANIL) [Concomitant]
  3. FLEXERIL (GLYCLOBENZAPRINE HYDROCHLORIDE) [Concomitant]

REACTIONS (7)
  - ABDOMINAL TENDERNESS [None]
  - ADHESIOLYSIS [None]
  - INCISION SITE COMPLICATION [None]
  - POST PROCEDURAL HAEMATOMA [None]
  - POSTOPERATIVE INFECTION [None]
  - SEROMA [None]
  - VAGINAL DISORDER [None]
